FAERS Safety Report 7710030-X (Version None)
Quarter: 2011Q3

REPORT INFORMATION
  Report Type: 
  Country: None (occurrence: None)
  Receive Date: 20110825
  Receipt Date: 20110814
  Transmission Date: 20111222
  Serious: Yes (Hospitalization)
  Sender: FDA-Public Use
  Company Number: PHHY2011MX73765

PATIENT
  Age: 51 Year
  Sex: Female

DRUGS (3)
  1. EXFORGE [Suspect]
     Indication: HYPERTENSION
     Dosage: 1 DF, QD
     Dates: start: 20110801, end: 20110801
  2. GLYBURIDE [Concomitant]
     Dosage: 2 DF, PER DAY
     Dates: start: 20090801
  3. ENALAPRIL MALEATE [Concomitant]
     Dosage: 2 DF, PER DAY
     Dates: start: 20100201

REACTIONS (2)
  - FLUID RETENTION [None]
  - SWELLING [None]
